FAERS Safety Report 20332835 (Version 2)
Quarter: 2022Q1

REPORT INFORMATION
  Report Type: Spontaneous
  Country: CN (occurrence: None)
  Receive Date: 20220113
  Receipt Date: 20220126
  Transmission Date: 20220423
  Serious: Yes (Other)
  Sender: FDA-Public Use
  Company Number: 2022A019473

PATIENT
  Age: 78 Year
  Sex: Male

DRUGS (2)
  1. GEFITINIB [Suspect]
     Active Substance: GEFITINIB
     Indication: Non-small cell lung cancer metastatic
     Route: 048
  2. GEFITINIB [Suspect]
     Active Substance: GEFITINIB
     Indication: EGFR gene mutation
     Route: 048

REACTIONS (6)
  - Pulmonary mass [Unknown]
  - Acquired gene mutation [Unknown]
  - General physical health deterioration [Unknown]
  - Cancer with a high tumour mutational burden [Unknown]
  - Drug resistance [Unknown]
  - Hepatic function abnormal [Unknown]
